FAERS Safety Report 17837854 (Version 1)
Quarter: 2020Q2

REPORT INFORMATION
  Report Type: Spontaneous
  Country: US (occurrence: US)
  Receive Date: 20200528
  Receipt Date: 20200528
  Transmission Date: 20200714
  Serious: Yes (Hospitalization)
  Sender: FDA-Public Use
  Company Number: US-ACTELION-A-NJ2020-205456

PATIENT
  Sex: Female

DRUGS (1)
  1. OPSUMIT [Suspect]
     Active Substance: MACITENTAN
     Indication: SYSTEMIC SCLEROSIS PULMONARY
     Dosage: 10 MG, QD
     Route: 048

REACTIONS (2)
  - Hospitalisation [Unknown]
  - Product dose omission [Unknown]
